FAERS Safety Report 11169281 (Version 2)
Quarter: 2015Q2

REPORT INFORMATION
  Report Type: Report from Study
  Country: BR (occurrence: BR)
  Receive Date: 20150605
  Receipt Date: 20150610
  Transmission Date: 20150821
  Serious: Yes (Life-Threatening, Hospitalization, Disabling, Other)
  Sender: FDA-Public Use
  Company Number: BR-SA-2015SA077851

PATIENT
  Sex: Male

DRUGS (2)
  1. OXALIPLATIN. [Suspect]
     Active Substance: OXALIPLATIN
     Indication: NEOPLASM
     Route: 065
     Dates: start: 20120228, end: 20130911
  2. OXALIPLATIN. [Suspect]
     Active Substance: OXALIPLATIN
     Indication: NEOPLASM
     Route: 065

REACTIONS (2)
  - Seizure [Unknown]
  - Disease progression [Recovered/Resolved]

NARRATIVE: CASE EVENT DATE: 2015
